APPROVED DRUG PRODUCT: SCOPOLAMINE
Active Ingredient: SCOPOLAMINE
Strength: 1MG/72HR
Dosage Form/Route: SYSTEM;TRANSDERMAL
Application: A208769 | Product #001 | TE Code: AB
Applicant: ACTAVIS LABORATORIES UT INC
Approved: Jan 10, 2022 | RLD: No | RS: No | Type: RX